FAERS Safety Report 17883011 (Version 2)
Quarter: 2020Q2

REPORT INFORMATION
  Report Type: Spontaneous
  Country: IT (occurrence: IT)
  Receive Date: 20200610
  Receipt Date: 20200624
  Transmission Date: 20200714
  Serious: Yes (Other)
  Sender: FDA-Public Use
  Company Number: IT-009507513-2006ITA002905

PATIENT
  Age: 52 Year
  Sex: Male

DRUGS (5)
  1. FACTOR VIII [Concomitant]
     Active Substance: ANTIHEMOPHILIC FACTOR HUMAN
  2. RIBAVIRIN. [Suspect]
     Active Substance: RIBAVIRIN
     Indication: HEPATITIS C
     Dosage: UNK
     Route: 065
     Dates: start: 2006, end: 2007
  3. INTERFERON (UNSPECIFIED) [Suspect]
     Active Substance: UNSPECIFIED INGREDIENT
     Indication: HEPATITIS C
     Dosage: UNK
     Route: 065
     Dates: start: 2006, end: 2007
  4. EMICIZUMAB. [Concomitant]
     Active Substance: EMICIZUMAB
     Dosage: FOLLOWED BY MAINTENANCE DOSE 1.5 MG
     Route: 058
     Dates: start: 20200121
  5. GRAZOPREVIR (+) ELBASVIR [Concomitant]
     Active Substance: ELBASVIR\GRAZOPREVIR

REACTIONS (1)
  - Atrial fibrillation [Recovered/Resolved]
